FAERS Safety Report 8966180 (Version 1)
Quarter: 2012Q4

REPORT INFORMATION
  Report Type: Spontaneous
  Country: US (occurrence: None)
  Receive Date: 20121204
  Receipt Date: 20121204
  Transmission Date: 20130627
  Serious: Yes (Hospitalization)
  Sender: FDA-Public Use
  Company Number: UTC-026006

PATIENT
  Age: 68 Year
  Sex: Female
  Weight: 53.63 kg

DRUGS (2)
  1. TYVASO (6 MICROGRAM, AEROSOL FOR INHALATION) (TREPROSTINIL SODIUM) [Suspect]
     Indication: PRIMARY PULMONARY HYPERTENSION
     Dosage: 216 mcg  (54 mcg, 4 in 1 D),  Inhalation
     Route: 055
     Dates: start: 20120329
  2. LETAIRIS (AMBRISENTAN) (UNKNOWN) [Concomitant]

REACTIONS (1)
  - Cardiac failure congestive [None]
